FAERS Safety Report 6233105-3 (Version None)
Quarter: 2009Q2

REPORT INFORMATION
  Report Type: 
  Country: None (occurrence: None)
  Receive Date: 20090617
  Receipt Date: 20090402
  Transmission Date: 20091009
  Serious: Yes (Hospitalization)
  Sender: FDA-Public Use
  Company Number: TR-ELI_LILLY_AND_COMPANY-TR200906003185

PATIENT
  Age: 49 Year
  Sex: Female

DRUGS (3)
  1. HUMULIN R [Suspect]
     Indication: DIABETES MELLITUS
     Dosage: 16 U, EACH MORNING
     Route: 058
     Dates: start: 20070401
  2. HUMULIN R [Suspect]
     Dosage: 16 U, EACH NOON
     Route: 058
     Dates: start: 20070401
  3. HUMULIN R [Suspect]
     Dosage: 36 U, EACH EVENING
     Route: 058
     Dates: start: 20070401

REACTIONS (2)
  - BLOOD GLUCOSE ABNORMAL [None]
  - HYSTERECTOMY [None]
